FAERS Safety Report 8471923-1 (Version None)
Quarter: 2012Q2

REPORT INFORMATION
  Report Type: 
  Country: None (occurrence: None)
  Receive Date: 20120627
  Receipt Date: 20120619
  Transmission Date: 20120825
  Serious: Yes (Hospitalization)
  Sender: FDA-Public Use
  Company Number: US-BAYER-2012-062336

PATIENT
  Age: 32 Year
  Sex: Female
  Weight: 117.91 kg

DRUGS (10)
  1. YAZ [Suspect]
  2. FLONASE [Concomitant]
     Dosage: 2 SPRAYS DAILY 50 MCG
     Route: 045
  3. L-TRYPTOPHAN [Concomitant]
     Dosage: TWO QD
  4. HYDROCODONE BITARTRATE AND ACETAMINOPHEN [Concomitant]
     Dosage: 5/500
  5. ALLEGRA [Concomitant]
     Dosage: 180 MG, DAILY
     Route: 048
  6. AMOXICILLIN [Concomitant]
     Dosage: 500 MG, UNK
  7. VITAMIN D [Concomitant]
     Dosage: 2000 U, QD
  8. TPN [Concomitant]
     Dosage: TWO QD (EVERY DAY)
  9. WELLBUTRIN [Concomitant]
     Dosage: 100 MG,DAILY
     Route: 048
  10. CLINDAMYCIN HCL [Concomitant]
     Dosage: 300 MG, UNK

REACTIONS (2)
  - DEEP VEIN THROMBOSIS [None]
  - PULMONARY EMBOLISM [None]
